FAERS Safety Report 8427078-2 (Version None)
Quarter: 2012Q2

REPORT INFORMATION
  Report Type: 
  Country: None (occurrence: None)
  Receive Date: 20120611
  Receipt Date: 20120605
  Transmission Date: 20120825
  Serious: Yes (Hospitalization)
  Sender: FDA-Public Use
  Company Number: IT-ROCHE-1076760

PATIENT
  Sex: Male
  Weight: 68 kg

DRUGS (2)
  1. MEGESTIL [Concomitant]
     Indication: ASTHENIA
     Route: 048
     Dates: start: 20120508
  2. VEMURAFENIB [Suspect]
     Indication: MALIGNANT MELANOMA
     Route: 048
     Dates: start: 20120526, end: 20120604

REACTIONS (2)
  - ASTHENIA [None]
  - MYOCARDIAL ISCHAEMIA [None]
